FAERS Safety Report 8332036-2 (Version None)
Quarter: 2012Q2

REPORT INFORMATION
  Report Type: 
  Country: None (occurrence: None)
  Receive Date: 20120502
  Receipt Date: 20120425
  Transmission Date: 20120825
  Serious: Yes (Other)
  Sender: FDA-Public Use
  Company Number: US-AMGEN-USASP2012021720

PATIENT
  Age: 49 Year
  Sex: Female
  Weight: 61 kg

DRUGS (7)
  1. MEDROL [Concomitant]
     Dosage: 4 MG, QD
     Route: 048
     Dates: start: 20120308
  2. ENBREL [Suspect]
     Dosage: 50 MG, QWK
     Route: 058
     Dates: start: 20120113, end: 20120315
  3. RECLAST [Concomitant]
     Indication: OSTEOPOROSIS
     Dosage: 5 MG, Q12MO
     Route: 042
     Dates: start: 20120101
  4. PLAQUENIL [Concomitant]
     Indication: RHEUMATOID ARTHRITIS
     Dosage: 200 MG, BID
     Route: 048
     Dates: start: 20110801
  5. ENBREL [Suspect]
     Indication: RHEUMATOID ARTHRITIS
     Dosage: 50 MG, QWK
     Route: 058
     Dates: start: 20120101, end: 20120302
  6. METROGEL [Concomitant]
     Indication: ROSACEA
     Dosage: 0.75 MG, BID
     Route: 061
  7. OMEPRAZOLE [Concomitant]
     Indication: GASTROOESOPHAGEAL REFLUX DISEASE
     Dosage: 20 MG, QD
     Route: 048

REACTIONS (4)
  - PNEUMONIA [None]
  - SYSTEMIC LUPUS ERYTHEMATOSUS [None]
  - BRONCHITIS [None]
  - DRUG INEFFECTIVE [None]
